FAERS Safety Report 9311195 (Version 1)
Quarter: 2013Q2

REPORT INFORMATION
  Report Type: Spontaneous
  Country: DE (occurrence: DE)
  Receive Date: 20130528
  Receipt Date: 20130528
  Transmission Date: 20140414
  Serious: Yes (Death, Life-Threatening)
  Sender: FDA-Public Use
  Company Number: DE-JNJFOC-20130515533

PATIENT
  Sex: Male

DRUGS (2)
  1. REMICADE [Suspect]
     Indication: PSORIASIS
     Route: 042
     Dates: start: 2011
  2. REMICADE [Suspect]
     Indication: PSORIASIS
     Route: 042
     Dates: start: 201305

REACTIONS (1)
  - Lung neoplasm malignant [Fatal]
